FAERS Safety Report 17392418 (Version 1)
Quarter: 2020Q1

REPORT INFORMATION
  Report Type: Report from Study
  Country: US (occurrence: US)
  Receive Date: 20200207
  Receipt Date: 20200207
  Transmission Date: 20200409
  Serious: No
  Sender: FDA-Public Use
  Company Number: NVSC2020US029376

PATIENT
  Sex: Female

DRUGS (1)
  1. GILENYA [Suspect]
     Active Substance: FINGOLIMOD HYDROCHLORIDE
     Indication: MULTIPLE SCLEROSIS
     Dosage: 0.5 MG, QD
     Route: 048
     Dates: start: 20190807

REACTIONS (6)
  - Pyrexia [Recovering/Resolving]
  - Sinus congestion [Recovering/Resolving]
  - Malaise [Recovering/Resolving]
  - Otorrhoea [Recovering/Resolving]
  - Influenza like illness [Recovering/Resolving]
  - Chest discomfort [Recovering/Resolving]
